FAERS Safety Report 6779167-6 (Version None)
Quarter: 2010Q2

REPORT INFORMATION
  Report Type: 
  Country: None (occurrence: None)
  Receive Date: 20100618
  Receipt Date: 20100610
  Transmission Date: 20101027
  Serious: Yes (Life-Threatening)
  Sender: FDA-Public Use
  Company Number: IT-BRISTOL-MYERS SQUIBB COMPANY-15143704

PATIENT
  Age: 57 Year
  Sex: Male

DRUGS (1)
  1. APROVEL TABS [Suspect]
     Indication: HYPERTENSION
     Route: 048
     Dates: start: 20100212, end: 20100215

REACTIONS (2)
  - RASH GENERALISED [None]
  - RESPIRATORY FAILURE [None]
